FAERS Safety Report 8941992 (Version 1)
Quarter: 2012Q4

REPORT INFORMATION
  Report Type: 
  Country: GB (occurrence: GB)
  Receive Date: 20121203
  Receipt Date: 20121203
  Transmission Date: 20130627
  Serious: Yes (Hospitalization)
  Sender: FDA-Public Use
  Company Number: GB-PFIZER INC-2012299961

PATIENT
  Age: 81 Year
  Sex: Male
  Weight: 63.4 kg

DRUGS (7)
  1. IBUPROFEN [Suspect]
     Indication: ARTHRITIC PAINS
     Dosage: 3x/day, As required
     Route: 061
     Dates: start: 20121106, end: 20121112
  2. ACETYLSALICYLIC ACID [Suspect]
     Indication: ATRIAL FIBRILLATION
     Dosage: 75 mg, 1x/day in the morning - Long term
     Route: 048
     Dates: end: 20121112
  3. CLEXANE [Suspect]
     Indication: FRACTURED NECK OF FEMUR
     Dosage: 40 mg, 1x/day
     Route: 058
     Dates: start: 20120930, end: 20121031
  4. PARACETAMOL [Concomitant]
     Dosage: 1 g, 4x/day As necessary
  5. LAXIDO [Concomitant]
     Dosage: UNK, 1-2 DF as necessary
  6. CALCICHEW-D3 [Concomitant]
     Dosage: 1 DF, 2x/day
  7. FOLIC ACID [Concomitant]
     Dosage: 5 mg, 1x/day

REACTIONS (2)
  - Rectal haemorrhage [Recovering/Resolving]
  - Haemoglobin decreased [Recovering/Resolving]
